FAERS Safety Report 21299017 (Version 1)
Quarter: 2022Q3

REPORT INFORMATION
  Report Type: Spontaneous
  Country: US (occurrence: None)
  Receive Date: 20220905
  Receipt Date: 20220905
  Transmission Date: 20221027
  Serious: Yes (Hospitalization, Other)
  Sender: FDA-Public Use
  Company Number: None

PATIENT
  Age: 74 Year
  Sex: Male
  Weight: 72 kg

DRUGS (1)
  1. PHENYTOIN [Suspect]
     Active Substance: PHENYTOIN
     Dosage: FREQUENCY : TWICE A DAY;?
     Route: 048
     Dates: start: 20220601, end: 20220902

REACTIONS (4)
  - Anticonvulsant drug level increased [None]
  - Product quality issue [None]
  - Product physical issue [None]
  - Therapeutic drug monitoring analysis not performed [None]

NARRATIVE: CASE EVENT DATE: 20220902
